FAERS Safety Report 18500201 (Version 3)
Quarter: 2020Q4

REPORT INFORMATION
  Report Type: Report from Study
  Country: None (occurrence: GR)
  Receive Date: 20201113
  Receipt Date: 20201221
  Transmission Date: 20210114
  Serious: Yes (Hospitalization)
  Sender: FDA-Public Use
  Company Number: GR-ABBVIE-20K-066-3647609-00

PATIENT
  Age: 69 Year
  Sex: Male

DRUGS (6)
  1. PIDOLEN [Concomitant]
     Indication: HYPERTENSION
     Route: 048
  2. ELCODROP [Concomitant]
     Indication: GASTROINTESTINAL DISORDER PROPHYLAXIS
     Route: 048
  3. LYRICA [Concomitant]
     Active Substance: PREGABALIN
     Indication: PRODUCT USED FOR UNKNOWN INDICATION
     Route: 048
  4. DUODOPA [Suspect]
     Active Substance: CARBIDOPA\LEVODOPA
  5. REMERON [Concomitant]
     Active Substance: MIRTAZAPINE
     Indication: INSOMNIA
     Route: 048
     Dates: start: 20170407
  6. DUODOPA [Suspect]
     Active Substance: CARBIDOPA\LEVODOPA
     Indication: PARKINSON^S DISEASE
     Dosage: MD: 5.0 ML; CRD: 5.1 ML/H, 3.8 ML/H. ED: 2.8 ML ?24-HOUR DRUG ADMINISTRATION
     Route: 050
     Dates: start: 20170317

REACTIONS (1)
  - Inguinal hernia [Recovered/Resolved]
